FAERS Safety Report 14314812 (Version 1)
Quarter: 2017Q4

REPORT INFORMATION
  Report Type: Spontaneous
  Country: NZ (occurrence: NZ)
  Receive Date: 20171221
  Receipt Date: 20171221
  Transmission Date: 20180321
  Serious: Yes (Other)
  Sender: FDA-Public Use
  Company Number: NZ-ELI_LILLY_AND_COMPANY-NZ201712005968

PATIENT
  Age: 46 Year
  Sex: Male

DRUGS (4)
  1. ZYPREXA RELPREVV [Suspect]
     Active Substance: OLANZAPINE PAMOATE
     Indication: PRODUCT USED FOR UNKNOWN INDICATION
     Dosage: 405 MG, EVERY FORTNIGHT
     Route: 030
  2. NALOXONE [Suspect]
     Active Substance: NALOXONE
     Indication: DRUG USE DISORDER
     Dosage: UNK, UNKNOWN
     Route: 065
  3. METHADONE [Concomitant]
     Active Substance: METHADONE HYDROCHLORIDE
     Dosage: 65 MG, UNKNOWN
     Route: 065
  4. NALOXONE [Suspect]
     Active Substance: NALOXONE
     Indication: RESPIRATORY DISORDER

REACTIONS (8)
  - Dysarthria [Recovered/Resolved]
  - Respiratory disorder [Recovered/Resolved]
  - Aggression [Recovered/Resolved]
  - Post-injection delirium sedation syndrome [Recovered/Resolved]
  - Posture abnormal [Recovered/Resolved]
  - Sedation [Recovered/Resolved]
  - Agitation [Recovered/Resolved]
  - Overdose [Unknown]

NARRATIVE: CASE EVENT DATE: 20171206
